FAERS Safety Report 10765363 (Version 1)
Quarter: 2015Q1

REPORT INFORMATION
  Report Type: Spontaneous
  Country: US (occurrence: None)
  Receive Date: 20150204
  Receipt Date: 20150204
  Transmission Date: 20150721
  Serious: Yes (Disabling)
  Sender: FDA-Public Use
  Company Number: None

PATIENT
  Age: 49 Year
  Sex: Female
  Weight: 91.63 kg

DRUGS (1)
  1. PHENYTOIN SODIUM. [Suspect]
     Active Substance: PHENYTOIN SODIUM
     Indication: SEIZURE
     Dosage: 1 TAB AM AND 2 TABS PM TWICE DAILY
     Route: 048
     Dates: start: 20141001, end: 20150102

REACTIONS (8)
  - Balance disorder [None]
  - Speech disorder [None]
  - Tremor [None]
  - Dizziness [None]
  - Anticonvulsant drug level increased [None]
  - Product quality issue [None]
  - Product substitution issue [None]
  - Fall [None]

NARRATIVE: CASE EVENT DATE: 20141227
